FAERS Safety Report 11898561 (Version 3)
Quarter: 2016Q2

REPORT INFORMATION
  Report Type: Spontaneous
  Country: US (occurrence: US)
  Receive Date: 20160108
  Receipt Date: 20160422
  Transmission Date: 20160815
  Serious: Yes (Death, Hospitalization, Disabling, Other)
  Sender: FDA-Public Use
  Company Number: US-AMGEN-USASP2015141056

PATIENT
  Sex: Female

DRUGS (1)
  1. ENBREL [Suspect]
     Active Substance: ETANERCEPT
     Indication: PRODUCT USED FOR UNKNOWN INDICATION
     Dosage: UNK
     Route: 065
     Dates: start: 1998, end: 2005

REACTIONS (7)
  - Squamous cell carcinoma of the tongue [Unknown]
  - Injury [Unknown]
  - Anxiety [Unknown]
  - Quality of life decreased [Unknown]
  - Death [Fatal]
  - Disability [Unknown]
  - Hospitalisation [Unknown]

NARRATIVE: CASE EVENT DATE: 201205
